FAERS Safety Report 10079937 (Version 1)
Quarter: 2014Q2

REPORT INFORMATION
  Report Type: Spontaneous
  Country: GB (occurrence: GB)
  Receive Date: 20140415
  Receipt Date: 20140415
  Transmission Date: 20141212
  Serious: Yes (Other)
  Sender: FDA-Public Use
  Company Number: PHHY2014GB042412

PATIENT
  Age: 73 Year
  Sex: Male

DRUGS (1)
  1. HALOPERIDOL [Suspect]
     Dosage: 1.5 MG, QD (AT NIGHT)
     Route: 048
     Dates: start: 20140321, end: 20140322

REACTIONS (1)
  - Hallucination [Recovered/Resolved]
